FAERS Safety Report 4622340-3 (Version None)
Quarter: 2005Q1

REPORT INFORMATION
  Report Type: 
  Country: None (occurrence: None)
  Receive Date: 20050324
  Receipt Date: 20050324
  Transmission Date: 20050727
  Serious: Yes (Disabling)
  Sender: FDA-Public Use
  Company Number: None

PATIENT
  Age: 37 Year
  Sex: Female
  Weight: 72.5755 kg

DRUGS (1)
  1. ZICAM EXTREME [Suspect]
     Indication: NASAL CONGESTION
     Dosage: AM  PM  NASAL
     Route: 045
     Dates: start: 20050226, end: 20050323

REACTIONS (2)
  - ANOSMIA [None]
  - DYSGEUSIA [None]
